FAERS Safety Report 5347379-4 (Version None)
Quarter: 2007Q2

REPORT INFORMATION
  Report Type: 
  Country: None (occurrence: None)
  Receive Date: 20070507
  Receipt Date: 20060412
  Transmission Date: 20071010
  Serious: Yes (Hospitalization, Other)
  Sender: FDA-Public Use
  Company Number: 26708

PATIENT
  Age: 67 Year
  Sex: Male

DRUGS (1)
  1. ADRIAMYCIN PFS [Suspect]
     Indication: PROSTATE CANCER
     Dosage: IV
     Route: 042

REACTIONS (2)
  - NAUSEA [None]
  - VOMITING [None]
